FAERS Safety Report 12471830 (Version 1)
Quarter: 2016Q2

REPORT INFORMATION
  Report Type: Spontaneous
  Country: US (occurrence: None)
  Receive Date: 20160615
  Receipt Date: 20160615
  Transmission Date: 20160815
  Serious: Yes (Hospitalization)
  Sender: FDA-Public Use
  Company Number: None

PATIENT
  Age: 75 Year
  Sex: Female
  Weight: 70.2 kg

DRUGS (10)
  1. LORAZEPAM 1 MG PO QPM PRN [Suspect]
     Active Substance: LORAZEPAM
  2. ELIQUIS [Concomitant]
     Active Substance: APIXABAN
  3. CARDIZEM [Concomitant]
     Active Substance: DILTIAZEM HYDROCHLORIDE
  4. FENTANYL TRANSDERMAL SYSTEM [Suspect]
     Active Substance: FENTANYL
     Indication: PAIN
     Dosage: DATE OF USE: CHRONIC?12MCG/HR
     Route: 061
  5. HYCET [Suspect]
     Active Substance: ACETAMINOPHEN\HYDROCODONE BITARTRATE
     Indication: PAIN
     Dosage: DATE OF USE: CHRONIC?PRN
     Route: 048
  6. DIAMOX SEQUELS [Concomitant]
     Active Substance: ACETAZOLAMIDE
  7. VITAMIN B12 [Concomitant]
     Active Substance: CYANOCOBALAMIN
  8. DECADRON [Concomitant]
     Active Substance: DEXAMETHASONE
  9. COLACE [Concomitant]
     Active Substance: DOCUSATE SODIUM
  10. MMW [Concomitant]

REACTIONS (1)
  - Acute respiratory failure [None]

NARRATIVE: CASE EVENT DATE: 20150912
